FAERS Safety Report 24164926 (Version 1)
Quarter: 2024Q3

REPORT INFORMATION
  Report Type: Spontaneous
  Country: CN (occurrence: CN)
  Receive Date: 20240802
  Receipt Date: 20240802
  Transmission Date: 20241017
  Serious: Yes (Other)
  Sender: BEIGENE
  Company Number: CN-BEIGENE-BGN-2024-011510

PATIENT

DRUGS (5)
  1. TISLELIZUMAB [Suspect]
     Active Substance: TISLELIZUMAB
     Indication: Angiocentric lymphoma
     Dosage: 200 MILLIGRAM
     Route: 041
     Dates: start: 20230505
  2. TISLELIZUMAB [Suspect]
     Active Substance: TISLELIZUMAB
     Dosage: 200 MILLIGRAM D1
     Route: 041
     Dates: start: 20240505
  3. GEMCITABINE [Concomitant]
     Active Substance: GEMCITABINE
     Dosage: 1800 MILLIGRAM D1,8
     Dates: start: 20240505
  4. OXALIPLATIN [Concomitant]
     Active Substance: OXALIPLATIN
     Dosage: 150 MILLIGRAM D1
     Dates: start: 20240505
  5. DEXAMETHASONE [Concomitant]
     Active Substance: DEXAMETHASONE
     Dosage: 20 MILLIGRAM D1-4
     Dates: start: 20240505

REACTIONS (2)
  - Peripheral nerve injury [Recovering/Resolving]
  - Off label use [Unknown]

NARRATIVE: CASE EVENT DATE: 20230505
